FAERS Safety Report 9356612 (Version 2)
Quarter: 2013Q2

REPORT INFORMATION
  Report Type: Spontaneous
  Country: GB (occurrence: None)
  Receive Date: 20130617
  Receipt Date: 20130619
  Transmission Date: 20140414
  Serious: Yes (Hospitalization)
  Sender: FDA-Public Use
  Company Number: AUR-APL-2013-04876

PATIENT
  Age: 77 Year
  Sex: Female

DRUGS (8)
  1. ALENDRONIC ACID [Suspect]
     Indication: OSTEOPOROSIS
     Dosage: 1 IN 1 WK
     Route: 048
     Dates: start: 2001, end: 20130516
  2. ALENDRONIC ACID [Suspect]
     Dosage: 1 IN 1 WK
     Route: 048
     Dates: start: 2001, end: 20130516
  3. CODEINE( CODEINE) [Concomitant]
  4. DOSULEPIN (DOSULEPIN) [Concomitant]
  5. GABAPENTIN( GABAPENTIN) [Concomitant]
  6. LANSOPRAZOLE (LANSOPRAZOLE) [Concomitant]
  7. PARACETAMOL (PARACETAMOL) [Concomitant]
  8. PROPRANOLOL (PROPRANOLOL) [Concomitant]

REACTIONS (5)
  - Fall [None]
  - Groin pain [None]
  - Pain in extremity [None]
  - Bone disorder [None]
  - Atypical femur fracture [None]
